FAERS Safety Report 9940666 (Version 1)
Quarter: 2014Q1

REPORT INFORMATION
  Report Type: Spontaneous
  Country: US (occurrence: US)
  Receive Date: 20140303
  Receipt Date: 20140303
  Transmission Date: 20141002
  Serious: No
  Sender: FDA-Public Use
  Company Number: US-PFIZER INC-2014059619

PATIENT
  Sex: Female

DRUGS (2)
  1. XANAX XR [Suspect]
     Indication: PANIC ATTACK
     Dosage: UNK
  2. XANAX XR [Suspect]
     Indication: ANXIETY

REACTIONS (2)
  - Drug ineffective [Not Recovered/Not Resolved]
  - Thinking abnormal [Not Recovered/Not Resolved]
